FAERS Safety Report 10247462 (Version 1)
Quarter: 2014Q1

REPORT INFORMATION
  Report Type: Spontaneous
  Country: US (occurrence: None)
  Receive Date: 20140306
  Receipt Date: 20140306
  Transmission Date: 20141002
  Serious: Yes (Hospitalization, Disabling, Other)
  Sender: FDA-Public Use
  Company Number: 163-21880-13033429

PATIENT
  Age: 86 Year
  Sex: Male

DRUGS (27)
  1. REVLIMID [Suspect]
     Indication: PLASMA CELL MYELOMA
     Route: 048
     Dates: start: 20120119
  2. COREG (CARVEDILOL) (TABLETS) [Concomitant]
  3. COUMADIN (WARFARIN SODIUM) (TABLETS) [Concomitant]
  4. LASIX (FUROSEMIDE) (TABLETS) [Concomitant]
  5. GEODON (ZIPRASIDONE HYDROCHLORIDE) (INJECTION) [Concomitant]
  6. OXYCODONE (CAPSULES) [Concomitant]
  7. DURAGESIC (FENTANYL) (POULTICE OR PATCH) [Concomitant]
  8. ZYPREXA (OLANZAPINE) (TABLETS) [Concomitant]
  9. HYTRIN (TERAZOSIN HYDROCHLORIDE) (CAPSULES) [Concomitant]
  10. ZILACTIN-B (BENZOCAINE) (UNKNOWN) [Concomitant]
  11. ZAROXOLYN (METOLAZONE) (TABLETS) [Concomitant]
  12. MS CONTIN (MORPHINE SULFATE) (SUSTAINED-RELASE TABLET) [Concomitant]
  13. MSIR (MORPHINE SULFATE) (TABLETS) [Concomitant]
  14. DOCUSATE SODIUM (UNKNOWN) [Concomitant]
  15. GLUCOTROL (GLIPIZIDE) (TABLETS) [Concomitant]
  16. GLUCOPHAGE (METFORMIN) (TABLETS) [Concomitant]
  17. DECADRON (DEXAMETHASONE) (TABLETS) [Concomitant]
  18. PROTONIX (PANTOPRAZOLE) (TABLETS) [Concomitant]
  19. B-12 (CYANOCOBALAMIN) (TABLETS) [Concomitant]
  20. CENTRUM SILVER (UNKNOWN) [Concomitant]
  21. FOLIC ACID (TABLETS) [Concomitant]
  22. SIMVASTATIN (TABLETS) [Concomitant]
  23. ACETAMINOPHEN (PARACETAMOL) (TABLETS) [Concomitant]
  24. DIPHENHYDRAMINE HCL (DIPHENHYDRAMINE HYDROCHLORIDE) (CAPSULES) [Concomitant]
  25. BUFFERED LIDOCAINE (SOLUTION) [Concomitant]
  26. NORMAL SALINE (SODIUM CHLORIDE) (0.9 PERCENT, INJECTION FOR INFUSION) [Concomitant]
  27. INSULIN (INJECTION) [Concomitant]

REACTIONS (2)
  - Red blood cell count decreased [None]
  - Dyspnoea [None]
